FAERS Safety Report 9264745 (Version 1)
Quarter: 2013Q2

REPORT INFORMATION
  Report Type: Spontaneous
  Country: US (occurrence: None)
  Receive Date: 20130429
  Receipt Date: 20130429
  Transmission Date: 20140414
  Serious: No
  Sender: FDA-Public Use
  Company Number: None

PATIENT
  Age: 59 Year
  Sex: Male

DRUGS (2)
  1. PEGASYS [Suspect]
     Indication: CHRONIC HEPATITIS C
     Dosage: 180MCG QW SUBQ
     Route: 058
     Dates: start: 20130312
  2. RIBAVARIN [Suspect]
     Indication: CHRONIC HEPATITIS C
     Dosage: 600MG BID PO
     Route: 048
     Dates: start: 20130312

REACTIONS (1)
  - Dyspnoea [None]
